FAERS Safety Report 7419891-5 (Version None)
Quarter: 2011Q2

REPORT INFORMATION
  Report Type: 
  Country: None (occurrence: None)
  Receive Date: 20110413
  Receipt Date: 20110413
  Transmission Date: 20111010
  Serious: No
  Sender: FDA-Public Use
  Company Number: None

PATIENT
  Age: 52 Year
  Sex: Female

DRUGS (1)
  1. LISINOPRIL [Suspect]
     Dosage: 5 MG ONE PO Q D
     Route: 048
     Dates: start: 20100701, end: 20110401

REACTIONS (1)
  - PAIN IN EXTREMITY [None]
